FAERS Safety Report 10028691 (Version 1)
Quarter: 2014Q1

REPORT INFORMATION
  Report Type: Spontaneous
  Country: KR (occurrence: KR)
  Receive Date: 20140321
  Receipt Date: 20140321
  Transmission Date: 20141002
  Serious: Yes (Hospitalization, Other)
  Sender: FDA-Public Use
  Company Number: PHHY2014KR032016

PATIENT
  Age: 57 Year
  Sex: Female

DRUGS (2)
  1. THIAMAZOLE [Suspect]
     Indication: BASEDOW^S DISEASE
     Dosage: 5 MG, BID
  2. THIAMAZOLE [Suspect]
     Dosage: 20 MG, BID

REACTIONS (16)
  - Guillain-Barre syndrome [Recovering/Resolving]
  - Muscular weakness [Unknown]
  - Polyneuropathy [Recovering/Resolving]
  - Quadriplegia [Recovering/Resolving]
  - Dysarthria [Recovering/Resolving]
  - Hypotonia [Recovering/Resolving]
  - Areflexia [Recovering/Resolving]
  - Pneumonia fungal [Unknown]
  - Cough [Unknown]
  - Pyrexia [Unknown]
  - Agranulocytosis [Unknown]
  - Anaemia [Unknown]
  - Leukopenia [Unknown]
  - Diarrhoea [Unknown]
  - Abdominal pain [Unknown]
  - Fatigue [Unknown]
